FAERS Safety Report 9571292 (Version 3)
Quarter: 2013Q4

REPORT INFORMATION
  Report Type: Report from Study
  Country: US (occurrence: US)
  Receive Date: 20131001
  Receipt Date: 20131226
  Transmission Date: 20140711
  Serious: Yes (Hospitalization)
  Sender: FDA-Public Use
  Company Number: US-ASTELLAS-2013US010229

PATIENT
  Age: 76 Year
  Sex: Female
  Weight: 51 kg

DRUGS (32)
  1. ERLOTINIB TABLET [Suspect]
     Indication: SQUAMOUS CELL CARCINOMA
     Dosage: 150 MG, 2 DOSES
     Route: 048
     Dates: start: 20130827
  2. ERLOTINIB TABLET [Interacting]
     Dosage: 100 MG, 19 TOTAL DOSES
     Route: 048
     Dates: start: 20130829, end: 20130917
  3. CETUXIMAB [Suspect]
     Indication: SQUAMOUS CELL CARCINOMA
     Dosage: 375 MG, UID/QD (CYCLE 1 DAY 1)
     Route: 042
     Dates: start: 20130806
  4. CETUXIMAB [Suspect]
     Dosage: 375 MG, UID/QD(CYCLE 1 DAY 8)
     Route: 042
     Dates: start: 20130814
  5. CETUXIMAB [Suspect]
     Dosage: 375 MG, UID/QD (CYCLE 1 DAY 15)
     Route: 042
     Dates: start: 20130820
  6. CETUXIMAB [Suspect]
     Dosage: 372 MG, UID/QD (CYCLE 2 DAY 1)
     Route: 042
     Dates: start: 20130827
  7. CETUXIMAB [Suspect]
     Dosage: 372 MG, UID/QD (CYCLE 2 DAY 8)
     Route: 042
     Dates: start: 20130903
  8. CETUXIMAB [Suspect]
     Dosage: 372 MG, UID/QD (CYCLE 2 DAY 15)
     Route: 042
     Dates: start: 20130910, end: 20130917
  9. PACLITAXEL [Suspect]
     Indication: SQUAMOUS CELL CARCINOMA
     Dosage: 120 MG, UID/QD (CYCLE 1 DAY 1)
     Route: 042
     Dates: start: 20130806
  10. PACLITAXEL [Suspect]
     Dosage: 120 MG, UID/QD (CYCLE 1 DAY 8)
     Route: 042
     Dates: start: 20130814
  11. PACLITAXEL [Suspect]
     Dosage: 120 MG, UID/QD (CYCLE 1 DAY 15)
     Route: 042
     Dates: start: 20130820
  12. PACLITAXEL [Suspect]
     Dosage: 119 MG, UID/QD (CYCLE 2 DAY 1)
     Route: 042
     Dates: start: 20130827
  13. PACLITAXEL [Suspect]
     Dosage: 119 MG, ON 10SEP2013 (CYCLE 2 , DAY 15) WITHHELD
     Route: 042
     Dates: start: 20130903
  14. PACLITAXEL [Suspect]
     Dosage: 104 MG, UID/QD (CYCLE 2 DAY 15)
     Route: 042
     Dates: start: 20130917
  15. CARBOPLATIN [Suspect]
     Indication: SQUAMOUS CELL CARCINOMA
     Dosage: 210 MG, ON 10SEP2013 (CYCLE 2 , DAY 15) WITHHELD
     Route: 042
     Dates: start: 20130806
  16. CARBOPLATIN [Suspect]
     Dosage: 210 MG, UID/QD (CYCLE 1 DAY 8)
     Route: 042
     Dates: start: 20130814
  17. CARBOPLATIN [Suspect]
     Dosage: 250 MG, UID/QD (CYCLE 1 DAY 15)
     Route: 042
     Dates: start: 20130820
  18. CARBOPLATIN [Suspect]
     Dosage: 245 MG, UID/QD (CYCLE 2 DAY 1)
     Route: 042
     Dates: start: 20130827
  19. CARBOPLATIN [Suspect]
     Dosage: 245 MG, UID/QD (CYCLE 2 DAY 8)
     Route: 042
     Dates: start: 20130903
  20. CARBOPLATIN [Suspect]
     Dosage: 182 MG, UID/QD (CYCLE 2 DAY 15)
     Route: 042
     Dates: start: 20130917
  21. OXYCODONE [Concomitant]
     Indication: PRODUCT USED FOR UNKNOWN INDICATION
     Dosage: 5 MG, UNKNOWN/D
     Route: 048
  22. ZOFRAN                             /00955301/ [Concomitant]
     Indication: PRODUCT USED FOR UNKNOWN INDICATION
     Dosage: 4 MG, PRN
     Route: 048
  23. DOCUSATE SOD [Concomitant]
     Indication: PRODUCT USED FOR UNKNOWN INDICATION
     Dosage: 100 MG, UID/QD
     Route: 048
  24. ZOLOFT [Concomitant]
     Indication: PRODUCT USED FOR UNKNOWN INDICATION
     Dosage: 100 MG, UID/QD
     Route: 065
  25. ASPIRIN [Concomitant]
     Indication: PRODUCT USED FOR UNKNOWN INDICATION
     Dosage: 81 MG, UID/QD
     Route: 065
  26. ERGOCALCIFEROL [Concomitant]
     Indication: PRODUCT USED FOR UNKNOWN INDICATION
     Dosage: 5000 U, BID
     Route: 065
  27. ACETAMINOPHEN [Concomitant]
     Indication: PRODUCT USED FOR UNKNOWN INDICATION
     Dosage: 650 MG, UID/QD
     Route: 050
  28. AQUAPHOR                           /01181901/ [Concomitant]
     Indication: PRODUCT USED FOR UNKNOWN INDICATION
     Dosage: UNK MG, UNKNOWN/D
     Route: 065
  29. WESTCORT [Concomitant]
     Indication: PRODUCT USED FOR UNKNOWN INDICATION
     Dosage: PRN
     Route: 061
  30. TRAZODONE [Concomitant]
     Indication: PRODUCT USED FOR UNKNOWN INDICATION
     Dosage: 25 MG, UID/QD PRN
     Route: 048
  31. METROPROLOL [Concomitant]
     Indication: PRODUCT USED FOR UNKNOWN INDICATION
     Dosage: UNK
     Route: 065
  32. TRANSDERM PATCH [Concomitant]
     Indication: PRODUCT USED FOR UNKNOWN INDICATION
     Dosage: UNK
     Route: 065

REACTIONS (4)
  - Off label use [Unknown]
  - Oral cavity fistula [Unknown]
  - Pain in jaw [Unknown]
  - Swelling face [Unknown]
